FAERS Safety Report 8191077-9 (Version None)
Quarter: 2012Q1

REPORT INFORMATION
  Report Type: 
  Country: None (occurrence: None)
  Receive Date: 20120307
  Receipt Date: 20110606
  Transmission Date: 20120608
  Serious: Yes (Hospitalization, Disabling)
  Sender: FDA-Public Use
  Company Number: US-GLAXOSMITHKLINE-A0932373A

PATIENT
  Age: 60 Year
  Sex: Male

DRUGS (1)
  1. AVANDAMET [Suspect]
     Indication: DIABETES MELLITUS
     Route: 048
     Dates: start: 20030101

REACTIONS (6)
  - CARDIOVASCULAR DISORDER [None]
  - VASCULAR GRAFT [None]
  - CARDIAC OPERATION [None]
  - PLEURAL EFFUSION [None]
  - FATIGUE [None]
  - CARDIAC DISORDER [None]
